FAERS Safety Report 5114092-8 (Version None)
Quarter: 2006Q3

REPORT INFORMATION
  Report Type: 
  Country: None (occurrence: None)
  Receive Date: 20060925
  Receipt Date: 20060323
  Transmission Date: 20061208
  Serious: Yes (Hospitalization)
  Sender: FDA-Public Use
  Company Number: JP-JPN-A200601023

PATIENT
  Age: 58 Year
  Sex: Male

DRUGS (6)
  1. EPIVIR [Suspect]
     Indication: HIV INFECTION
     Dosage: 150MG TWICE PER DAY
     Route: 048
     Dates: start: 20060316, end: 20060320
  2. TENOFOVIR DISOPROXIL FUMARATE [Suspect]
     Indication: HIV INFECTION
     Dosage: 300MG TWICE PER DAY
     Route: 048
     Dates: start: 20060316, end: 20060320
  3. KALETRA [Suspect]
     Indication: HIV INFECTION
     Dosage: 6U PER DAY
     Route: 048
     Dates: start: 20060316, end: 20060320
  4. PL [Suspect]
     Indication: NASOPHARYNGITIS
     Dosage: 1G THREE TIMES PER DAY
     Route: 048
     Dates: start: 20060318, end: 20060320
  5. LOXONIN [Suspect]
     Indication: NASOPHARYNGITIS
     Dosage: 60MG AS REQUIRED
     Route: 048
     Dates: start: 20060318, end: 20060320
  6. ISALON [Concomitant]
     Indication: NASOPHARYNGITIS
     Route: 048
     Dates: start: 20060318, end: 20060320

REACTIONS (5)
  - ACCIDENTAL OVERDOSE [None]
  - ANURIA [None]
  - KIDNEY FIBROSIS [None]
  - RENAL ARTERIOSCLEROSIS [None]
  - RENAL TUBULAR NECROSIS [None]
